FAERS Safety Report 10231210 (Version 1)
Quarter: 2014Q2

REPORT INFORMATION
  Report Type: Spontaneous
  Country: GB (occurrence: GB)
  Receive Date: 20140611
  Receipt Date: 20140611
  Transmission Date: 20141212
  Serious: Yes (Congenital Anomaly)
  Sender: FDA-Public Use
  Company Number: GB-ABBVIE-14P-167-1246583-00

PATIENT
  Sex: Female

DRUGS (1)
  1. SODIUM VALPROATE [Suspect]
     Indication: MATERNAL EXPOSURE TIMING UNSPECIFIED
     Route: 064

REACTIONS (13)
  - Foetal anticonvulsant syndrome [Not Recovered/Not Resolved]
  - Learning disorder [Not Recovered/Not Resolved]
  - Craniofacial deformity [Not Recovered/Not Resolved]
  - Dacryostenosis congenital [Not Recovered/Not Resolved]
  - Hypermobility syndrome [Not Recovered/Not Resolved]
  - Immune system disorder [Not Recovered/Not Resolved]
  - Foetal exposure during pregnancy [Not Recovered/Not Resolved]
  - Dependence [Unknown]
  - Unevaluable event [Unknown]
  - Hearing impaired [Unknown]
  - Tooth disorder [Unknown]
  - Ear disorder [Unknown]
  - Pharyngeal disorder [Unknown]
